FAERS Safety Report 6306410-X (Version None)
Quarter: 2009Q3

REPORT INFORMATION
  Report Type: 
  Country: None (occurrence: None)
  Receive Date: 20090810
  Receipt Date: 20090729
  Transmission Date: 20100115
  Serious: Yes (Hospitalization)
  Sender: FDA-Public Use
  Company Number: 2009AL002555

PATIENT
  Age: 51 Year
  Sex: Male

DRUGS (5)
  1. DIGOXIN [Suspect]
     Dosage: PO
     Route: 048
     Dates: start: 20040101
  2. LISINOPRIL [Concomitant]
  3. LASIX [Concomitant]
  4. COREG [Concomitant]
  5. COUMADIN [Concomitant]

REACTIONS (7)
  - CARDIAC FAILURE CONGESTIVE [None]
  - DYSPNOEA EXERTIONAL [None]
  - ECONOMIC PROBLEM [None]
  - INJURY [None]
  - ORTHOPNOEA [None]
  - SURGERY [None]
  - WHEEZING [None]
